FAERS Safety Report 4607781-2 (Version None)
Quarter: 2005Q1

REPORT INFORMATION
  Report Type: 
  Country: None (occurrence: None)
  Receive Date: 20050309
  Receipt Date: 20050301
  Transmission Date: 20050727
  Serious: Yes (Death)
  Sender: FDA-Public Use
  Company Number: 2005012880

PATIENT
  Age: 83 Year
  Sex: Female

DRUGS (9)
  1. CELEBRA (CELECOXIB) [Suspect]
     Indication: OSTEOARTHRITIS
     Dosage: 200 MG (200 MG, 1 IN 1 D), ORAL
     Route: 048
     Dates: start: 20020501, end: 20050111
  2. MAGNESIUM HYDROXIDE (MAGNESIUM HYDROXIDE) [Concomitant]
  3. VERAPAMIL HCL [Concomitant]
  4. DIGOXIN [Concomitant]
  5. FUROSEMIDE [Concomitant]
  6. INITARD (INSULIN, INSULIN INJECTION, ISOPHANE) [Concomitant]
  7. ENALAPRIL MALEATE [Concomitant]
  8. APOREX (DEXTROPROPOXYPHENE HYDROCHLORIDE, PARACETAMOL) [Concomitant]
  9. ACETAMINOPHEN [Concomitant]

REACTIONS (2)
  - DRUG INEFFECTIVE [None]
  - MYOCARDIAL INFARCTION [None]
